FAERS Safety Report 6006350-X (Version None)
Quarter: 2008Q4

REPORT INFORMATION
  Report Type: 
  Country: None (occurrence: None)
  Receive Date: 20081217
  Receipt Date: 20081209
  Transmission Date: 20090506
  Serious: Yes (Hospitalization)
  Sender: FDA-Public Use
  Company Number: US-ELI_LILLY_AND_COMPANY-US200812002500

PATIENT
  Sex: Male
  Weight: 86.168 kg

DRUGS (12)
  1. BYETTA [Suspect]
     Indication: TYPE 2 DIABETES MELLITUS
     Dosage: 5 UG, 2/D
     Route: 058
     Dates: start: 20070101, end: 20070101
  2. BYETTA [Suspect]
     Dosage: 10 UG, 2/D
     Route: 058
     Dates: start: 20070101, end: 20081101
  3. BYETTA [Suspect]
     Dosage: 10 UG, 2/D
     Route: 058
     Dates: start: 20081126
  4. GLIPIZIDE [Concomitant]
     Indication: TYPE 2 DIABETES MELLITUS
     Dosage: 10 MG, DAILY (1/D)
     Route: 048
  5. ACTOS [Concomitant]
     Indication: TYPE 2 DIABETES MELLITUS
     Dosage: 45 MG, DAILY (1/D)
     Route: 048
  6. LASIX [Concomitant]
     Dosage: 40 MG, DAILY (1/D)
     Route: 048
     Dates: start: 19980101, end: 20081205
  7. ENALAPRIL MALEATE [Concomitant]
     Indication: HYPERTENSION
     Dosage: UNK, UNKNOWN
     Route: 048
     Dates: end: 20081205
  8. DIGOXIN [Concomitant]
     Dosage: 250 MG, DAILY (1/D)
     Route: 048
  9. TRICOR [Concomitant]
     Dosage: 145 MG, DAILY (1/D)
     Route: 048
  10. CARVEDILOL [Concomitant]
     Dosage: 6.25 MG, DAILY (1/D)
     Route: 048
  11. LIPITOR [Concomitant]
     Dosage: 40 MG, DAILY (1/D)
     Route: 048
  12. ASPIRIN [Concomitant]
     Dosage: 325 MG, DAILY (1/D)
     Route: 048

REACTIONS (6)
  - BLOOD CALCIUM INCREASED [None]
  - DECREASED APPETITE [None]
  - DEHYDRATION [None]
  - INJECTION SITE SWELLING [None]
  - NAUSEA [None]
  - RENAL IMPAIRMENT [None]
